FAERS Safety Report 11763588 (Version 1)
Quarter: 2015Q4

REPORT INFORMATION
  Report Type: Spontaneous
  Country: US (occurrence: US)
  Receive Date: 20151120
  Receipt Date: 20151120
  Transmission Date: 20160304
  Serious: No
  Sender: FDA-Public Use
  Company Number: US-ELI_LILLY_AND_COMPANY-US201303004914

PATIENT
  Sex: Female
  Weight: 48.07 kg

DRUGS (1)
  1. FORTEO [Suspect]
     Active Substance: TERIPARATIDE
     Indication: OSTEOPOROSIS
     Dosage: UNK, QD
     Route: 058
     Dates: start: 201110

REACTIONS (6)
  - Joint swelling [Unknown]
  - Gait disturbance [Unknown]
  - Rib fracture [Unknown]
  - Ligament sprain [Unknown]
  - Fall [Unknown]
  - Contusion [Unknown]
